FAERS Safety Report 7074746-3 (Version None)
Quarter: 2010Q4

REPORT INFORMATION
  Report Type: 
  Country: None (occurrence: None)
  Receive Date: 20101029
  Receipt Date: 20101021
  Transmission Date: 20110411
  Serious: Yes (Other)
  Sender: FDA-Public Use
  Company Number: HR-RB-017252-10

PATIENT
  Sex: Male
  Weight: 82 kg

DRUGS (2)
  1. SUBOXONE [Suspect]
     Indication: DRUG DEPENDENCE
     Dosage: ONE HALF OF SUBOXONE TABLET (8MG SUBOXONE, 2 MG NALOXONE) DAILY
     Route: 060
     Dates: start: 20091215
  2. APAURIN [Concomitant]
     Indication: ANXIETY
     Dosage: AS NEEDED
     Route: 065

REACTIONS (8)
  - ABNORMAL DREAMS [None]
  - DEPRESSION [None]
  - FATIGUE [None]
  - LIBIDO DECREASED [None]
  - MOOD ALTERED [None]
  - PSYCHOTIC DISORDER [None]
  - SLEEP DISORDER [None]
  - TREMOR [None]
